FAERS Safety Report 13907551 (Version 1)
Quarter: 2017Q3

REPORT INFORMATION
  Report Type: Spontaneous
  Country: US (occurrence: US)
  Receive Date: 20170825
  Receipt Date: 20170825
  Transmission Date: 20171127
  Serious: No
  Sender: FDA-Public Use
  Company Number: US-ROCHE-1113513

PATIENT
  Sex: Female

DRUGS (2)
  1. NUTROPIN [Suspect]
     Active Substance: SOMATROPIN
     Indication: HYPOPITUITARISM
  2. PREMARIN [Concomitant]
     Active Substance: ESTROGENS, CONJUGATED

REACTIONS (4)
  - Insomnia [Unknown]
  - Waist circumference increased [Unknown]
  - Disturbance in attention [Unknown]
  - Lethargy [Unknown]
